FAERS Safety Report 5244865-2 (Version None)
Quarter: 2007Q1

REPORT INFORMATION
  Report Type: 
  Country: None (occurrence: None)
  Receive Date: 20070221
  Receipt Date: 20070221
  Transmission Date: 20070707
  Serious: No
  Sender: FDA-Public Use
  Company Number: None

PATIENT
  Age: 83 Year
  Sex: Female
  Weight: 68.0396 kg

DRUGS (1)
  1. SERTRALINE HCL [Suspect]
     Dosage: 25 MG 1 Q DAY

REACTIONS (1)
  - NAUSEA [None]
